FAERS Safety Report 4405485-2 (Version None)
Quarter: 2004Q3

REPORT INFORMATION
  Report Type: 
  Country: None (occurrence: None)
  Receive Date: 20040723
  Receipt Date: 20030910
  Transmission Date: 20050211
  Serious: No
  Sender: FDA-Public Use
  Company Number: US-GLAXOSMITHKLINE-A0425349A

PATIENT
  Age: 81 Year
  Sex: Female

DRUGS (7)
  1. AVANDIA [Suspect]
     Dosage: 8MG PER DAY
     Route: 048
     Dates: start: 19980101
  2. STARLIX [Concomitant]
     Dosage: 120MG PER DAY
  3. FUROSEMIDE [Concomitant]
     Dosage: 40MG PER DAY
  4. LEVOTHYROXINE SODIUM [Concomitant]
     Dosage: .75MG PER DAY
  5. LOVASTATIN [Concomitant]
     Dosage: 20MG PER DAY
  6. RABEPRAZOLE SODIUM [Concomitant]
     Dosage: 20MG PER DAY
  7. ATENOLOL [Concomitant]
     Dosage: 25MG PER DAY

REACTIONS (1)
  - ABDOMINAL PAIN UPPER [None]
